FAERS Safety Report 25664657 (Version 1)
Quarter: 2025Q3

REPORT INFORMATION
  Report Type: Spontaneous
  Country: US (occurrence: None)
  Receive Date: 20250808
  Receipt Date: 20250808
  Transmission Date: 20251021
  Serious: Yes (Life-Threatening, Hospitalization)
  Sender: FDA-CTU
  Company Number: None

PATIENT
  Age: 36 Year
  Weight: 78.3 kg

DRUGS (6)
  1. METOCLOPRAMIDE [Suspect]
     Active Substance: METOCLOPRAMIDE
     Indication: Impaired gastric emptying
     Dates: start: 20250804, end: 20250807
  2. HYDROCHLOROTHIAZIDE [Concomitant]
     Active Substance: HYDROCHLOROTHIAZIDE
  3. junel fe24 [Concomitant]
  4. PANTOPRAZOLE [Concomitant]
     Active Substance: PANTOPRAZOLE
  5. BUPROPION [Concomitant]
     Active Substance: BUPROPION
  6. Caltrate bone health vitamin [Concomitant]

REACTIONS (5)
  - Myalgia [None]
  - Asthenia [None]
  - Fatigue [None]
  - Sensory disturbance [None]
  - Blindness [None]

NARRATIVE: CASE EVENT DATE: 20250807
